FAERS Safety Report 21452842 (Version 3)
Quarter: 2022Q4

REPORT INFORMATION
  Report Type: Other
  Country: RU (occurrence: None)
  Receive Date: 20221013
  Receipt Date: 20221102
  Transmission Date: 20230113
  Serious: Yes (Other)
  Sender: FDA-Public Use
  Company Number: RU-ROCHE-3195507

PATIENT
  Age: 81 Year
  Sex: Male
  Weight: 50 kg

DRUGS (4)
  1. ATEZOLIZUMAB [Suspect]
     Active Substance: ATEZOLIZUMAB
     Indication: Hepatocellular carcinoma
     Route: 041
     Dates: start: 20211026
  2. BEVACIZUMAB [Suspect]
     Active Substance: BEVACIZUMAB
     Indication: Hepatocellular carcinoma
     Dosage: DOSE OF STUDY DRUG FIRST ADMINISTERED: 870
     Route: 065
     Dates: start: 20211027
  3. TENOFOVIR [Concomitant]
     Active Substance: TENOFOVIR
     Dates: start: 20210802
  4. ADEMETIONINE [Concomitant]
     Active Substance: ADEMETIONINE
     Indication: Adverse event
     Dates: start: 20211112

REACTIONS (1)
  - Gastritis erosive [Not Recovered/Not Resolved]

NARRATIVE: CASE EVENT DATE: 20220809
